FAERS Safety Report 9535331 (Version 2)
Quarter: 2013Q3

REPORT INFORMATION
  Report Type: Spontaneous
  Country: US (occurrence: US)
  Receive Date: 20130918
  Receipt Date: 20130918
  Transmission Date: 20140515
  Serious: No
  Sender: FDA-Public Use
  Company Number: US-PURDUE-USA-2012-0089464

PATIENT
  Age: 34 Year
  Sex: Female
  Weight: 53.52 kg

DRUGS (4)
  1. INTERMEZZO [Suspect]
     Indication: INSOMNIA
     Dosage: 7.75 MG, UNK
     Route: 048
     Dates: start: 20120701, end: 20120701
  2. MULTIVITAMIN                       /00097801/ [Concomitant]
  3. VITAMIN D                          /00107901/ [Concomitant]
  4. BABY ASPIRIN [Concomitant]

REACTIONS (3)
  - Incorrect route of drug administration [Unknown]
  - Angioedema [Recovered/Resolved]
  - Hypersensitivity [None]
